APPROVED DRUG PRODUCT: LACTULOSE
Active Ingredient: LACTULOSE
Strength: 10GM/15ML
Dosage Form/Route: SOLUTION;ORAL
Application: A073591 | Product #001
Applicant: HIKMA PHARMACEUTICALS USA INC
Approved: May 29, 1992 | RLD: No | RS: No | Type: DISCN